FAERS Safety Report 17580841 (Version 3)
Quarter: 2020Q2

REPORT INFORMATION
  Report Type: Report from Study
  Country: DE (occurrence: DE)
  Receive Date: 20200325
  Receipt Date: 20200408
  Transmission Date: 20200713
  Serious: Yes (Hospitalization, Other)
  Sender: FDA-Public Use
  Company Number: DE-BEH-2020114743

PATIENT
  Age: 49 Year
  Sex: Female
  Weight: 115 kg

DRUGS (11)
  1. OXICODONA [Concomitant]
     Active Substance: OXYCODONE
     Dosage: 40 MILLIGRAM, BID
     Route: 065
     Dates: start: 20191108
  2. PRIVIGEN [Suspect]
     Active Substance: HUMAN IMMUNOGLOBULIN G
     Indication: CHRONIC INFLAMMATORY DEMYELINATING POLYRADICULONEUROPATHY
     Dosage: UNK
     Route: 042
     Dates: start: 201902, end: 20190506
  3. OXICODONA [Concomitant]
     Active Substance: OXYCODONE
     Dosage: 20 MILLIGRAM, QD
  4. HIZENTRA [Suspect]
     Active Substance: HUMAN IMMUNOGLOBULIN G
     Indication: CHRONIC INFLAMMATORY DEMYELINATING POLYRADICULONEUROPATHY
     Dosage: 150 MILLILITER, QW
     Route: 058
     Dates: start: 201905
  5. OXICODONA [Concomitant]
     Active Substance: OXYCODONE
     Dosage: 5 MILLIGRAM, PRN
     Route: 065
     Dates: start: 201911
  6. OMEPRAZOL [OMEPRAZOLE] [Concomitant]
     Active Substance: OMEPRAZOLE
     Dosage: 20 MILLIGRAM, BID
     Route: 065
     Dates: start: 201909
  7. DULOXETINE. [Concomitant]
     Active Substance: DULOXETINE
     Dosage: 30 MILLIGRAM, OD
     Route: 065
     Dates: start: 2010
  8. METOHEXAL [METOPROLOL SUCCINATE] [Concomitant]
     Active Substance: METOPROLOL SUCCINATE
     Dosage: 95 MILLIGRAM, OD
     Route: 065
     Dates: start: 2010
  9. AMITRIPTYLIN [Concomitant]
     Active Substance: AMITRIPTYLINE
     Dosage: 50 MILLIGRAM, QD
     Route: 065
  10. PRIVIGEN [Suspect]
     Active Substance: HUMAN IMMUNOGLOBULIN G
     Dosage: 300 MILLILITER
     Route: 042
     Dates: start: 20191219, end: 20191220
  11. NOVAMINSULFON [Concomitant]
     Active Substance: METAMIZOLE
     Dosage: 500 MILLIGRAM, QID
     Route: 065
     Dates: start: 2015

REACTIONS (7)
  - Weight decreased [Not Recovered/Not Resolved]
  - Localised oedema [Not Recovered/Not Resolved]
  - Headache [Not Recovered/Not Resolved]
  - Drug ineffective [Not Recovered/Not Resolved]
  - Headache [Recovered/Resolved]
  - Face oedema [Not Recovered/Not Resolved]
  - Oedema peripheral [Not Recovered/Not Resolved]

NARRATIVE: CASE EVENT DATE: 201902
